FAERS Safety Report 15798161 (Version 1)
Quarter: 2019Q1

REPORT INFORMATION
  Report Type: Spontaneous
  Country: GB (occurrence: GB)
  Receive Date: 20190108
  Receipt Date: 20190108
  Transmission Date: 20190417
  Serious: Yes (Other)
  Sender: FDA-Public Use
  Company Number: GB-TEVA-2019-GB-995598

PATIENT
  Age: 47 Year
  Sex: Female
  Weight: 75 kg

DRUGS (3)
  1. OXYTOCIN. [Concomitant]
     Active Substance: OXYTOCIN
  2. GRANISETRON [Suspect]
     Active Substance: GRANISETRON
     Indication: NAUSEA
     Route: 042
     Dates: start: 20181206, end: 20181206
  3. LEVOBUPIVACAINE HYDROCHLORIDE [Concomitant]
     Active Substance: LEVOBUPIVACAINE HYDROCHLORIDE

REACTIONS (3)
  - Hallucination, auditory [Recovered/Resolved]
  - Delirium [Recovered/Resolved]
  - Abnormal dreams [Unknown]

NARRATIVE: CASE EVENT DATE: 20181206
